FAERS Safety Report 23273731 (Version 2)
Quarter: 2024Q1

REPORT INFORMATION
  Report Type: Report from Study
  Country: US (occurrence: US)
  Receive Date: 20231207
  Receipt Date: 20240115
  Transmission Date: 20240409
  Serious: Yes (Other)
  Sender: FDA-Public Use
  Company Number: US-ABBVIE-5522898

PATIENT
  Age: 86 Year
  Sex: Male

DRUGS (1)
  1. RINVOQ [Suspect]
     Active Substance: UPADACITINIB
     Indication: Dermatitis atopic
     Route: 048
     Dates: start: 20230929, end: 20240103

REACTIONS (8)
  - Fall [Recovering/Resolving]
  - Rib fracture [Not Recovered/Not Resolved]
  - Rib fracture [Recovering/Resolving]
  - Head injury [Recovering/Resolving]
  - Urinary tract infection [Unknown]
  - Pneumonia [Unknown]
  - Fall [Recovering/Resolving]
  - Pruritus [Unknown]

NARRATIVE: CASE EVENT DATE: 20230109
